FAERS Safety Report 9255829 (Version 1)
Quarter: 2013Q2

REPORT INFORMATION
  Report Type: Spontaneous
  Country: BR (occurrence: BR)
  Receive Date: 20130425
  Receipt Date: 20130425
  Transmission Date: 20140414
  Serious: Yes (Other)
  Sender: FDA-Public Use
  Company Number: BR-ELI_LILLY_AND_COMPANY-BR201304006355

PATIENT
  Age: 65 Year
  Sex: Female
  Weight: 43 kg

DRUGS (4)
  1. FORTEO [Suspect]
     Indication: OSTEOPOROSIS
     Dosage: 20 UG, QD
     Route: 058
     Dates: start: 201211
  2. LANTUS [Concomitant]
     Dosage: 14 IU, QD
     Route: 065
  3. LANTUS [Concomitant]
     Dosage: 10 IU, QD
     Route: 065
  4. LANTUS [Concomitant]
     Dosage: 12 IU, QD
     Route: 065

REACTIONS (5)
  - Hypoglycaemia [Recovered/Resolved]
  - Pancreatic disorder [Unknown]
  - Gait disturbance [Unknown]
  - Blood glucose increased [Recovered/Resolved]
  - Anxiety [Unknown]
